FAERS Safety Report 4753842-7 (Version None)
Quarter: 2005Q3

REPORT INFORMATION
  Report Type: 
  Country: None (occurrence: None)
  Receive Date: 20050826
  Receipt Date: 20050824
  Transmission Date: 20060218
  Serious: Yes (Disabling)
  Sender: FDA-Public Use
  Company Number: US-GLAXOSMITHKLINE-A0571666A

PATIENT
  Age: 26 Year
  Sex: Female

DRUGS (2)
  1. IMITREX [Suspect]
     Indication: MIGRAINE
     Dosage: 6MG AS REQUIRED
     Route: 058
     Dates: start: 20050823, end: 20050823
  2. THYROID TAB [Concomitant]

REACTIONS (8)
  - DIZZINESS [None]
  - DRUG INEFFECTIVE [None]
  - FEELING JITTERY [None]
  - FLUSHING [None]
  - HEADACHE [None]
  - NAUSEA [None]
  - PALLOR [None]
  - VOMITING [None]
